FAERS Safety Report 9168462 (Version 1)
Quarter: 2013Q1

REPORT INFORMATION
  Report Type: Spontaneous
  Country: US (occurrence: US)
  Receive Date: 20130318
  Receipt Date: 20130318
  Transmission Date: 20140127
  Serious: No
  Sender: FDA-Public Use
  Company Number: US-ABBOTT-12P-163-0955140-00

PATIENT
  Age: 54 None
  Sex: Male
  Weight: 93.07 kg

DRUGS (3)
  1. TARKA [Suspect]
     Indication: HYPERTENSION
     Dosage: 240/4 MILLIGRAMS
     Dates: start: 2008
  2. COREG [Concomitant]
     Indication: PRODUCT USED FOR UNKNOWN INDICATION
     Dates: start: 2008
  3. CLONIDINE [Concomitant]
     Indication: PRODUCT USED FOR UNKNOWN INDICATION

REACTIONS (4)
  - Ear infection [Recovering/Resolving]
  - Blood pressure increased [Recovering/Resolving]
  - Ear pain [Recovered/Resolved]
  - Blood triglycerides increased [Recovered/Resolved]
